FAERS Safety Report 20835278 (Version 1)
Quarter: 2022Q2

REPORT INFORMATION
  Report Type: Spontaneous
  Country: CO (occurrence: CO)
  Receive Date: 20220516
  Receipt Date: 20220516
  Transmission Date: 20220721
  Serious: Yes (Other)
  Sender: FDA-Public Use
  Company Number: CO-BAYER-2021-167366

PATIENT
  Sex: Female

DRUGS (2)
  1. LEVONORGESTREL [Suspect]
     Active Substance: LEVONORGESTREL
     Indication: Product used for unknown indication
     Route: 059
     Dates: start: 2018, end: 20210625
  2. ETHINYL ESTRADIOL\LEVONORGESTREL ACETATE [Suspect]
     Active Substance: ETHINYL ESTRADIOL\LEVONORGESTREL ACETATE
     Indication: Product used for unknown indication
     Route: 048

REACTIONS (4)
  - Device placement issue [Unknown]
  - Device use error [Unknown]
  - Skin wound [Not Recovered/Not Resolved]
  - Drug intolerance [Unknown]
